FAERS Safety Report 7395533-2 (Version None)
Quarter: 2011Q1

REPORT INFORMATION
  Report Type: 
  Country: None (occurrence: None)
  Receive Date: 20110325
  Receipt Date: 20110314
  Transmission Date: 20110831
  Serious: Yes (Hospitalization)
  Sender: FDA-Public Use
  Company Number: 2011MA002400

PATIENT
  Age: 26 Year
  Sex: Female

DRUGS (2)
  1. PHENYTOIN [Suspect]
     Indication: CONVULSION
     Dosage: 250 MG; QD; IV
     Route: 042
     Dates: start: 20090701
  2. PHENYTOIN [Suspect]
     Indication: ENCEPHALITIS
     Dosage: 250 MG; QD; IV
     Route: 042
     Dates: start: 20090701

REACTIONS (9)
  - APLASIA PURE RED CELL [None]
  - DECREASED APPETITE [None]
  - CONJUNCTIVAL PALLOR [None]
  - NAUSEA [None]
  - FATIGUE [None]
  - ANAEMIA [None]
  - PALPITATIONS [None]
  - DRUG EXPOSURE DURING PREGNANCY [None]
  - DYSPNOEA [None]
